FAERS Safety Report 4546740-5 (Version None)
Quarter: 2005Q1

REPORT INFORMATION
  Report Type: 
  Country: None (occurrence: None)
  Receive Date: 20050105
  Receipt Date: 20041221
  Transmission Date: 20050727
  Serious: Yes (Life-Threatening, Hospitalization)
  Sender: FDA-Public Use
  Company Number: 2004US001262

PATIENT
  Age: 30 Year
  Sex: Female

DRUGS (18)
  1. AMBISOME [Suspect]
     Indication: PNEUMONIA ASPERGILLUS
     Dosage: 100.00 MG, UID/QD; INTRAVENOUS
     Route: 042
     Dates: start: 20040823, end: 20040910
  2. EVEROLIMUS (EVEROLIMUS) [Suspect]
     Dosage: UNK, UNK; INTRAVENOUS
     Route: 042
  3. CYCLOSPORINE [Concomitant]
  4. ENTOCORT [Concomitant]
  5. KLACID 500 (CLARITHROMYCIN) [Concomitant]
  6. ACYCLOVIR [Concomitant]
  7. PANTOZOL (PANTOPRAZOLE SODIUM) [Concomitant]
  8. ORGAMETRIL 5 (LYNESTRENOL) [Concomitant]
  9. OVESTIN (ESTRIOL) [Concomitant]
  10. OXYBUTYNIN CHLORIDE [Concomitant]
  11. OXIS TURBUHALER [Concomitant]
  12. ANCOTIL (FLUCYTOSINE) [Concomitant]
  13. METOCLOPRAMIDE [Concomitant]
  14. ACETYLCYSTEINE [Concomitant]
  15. NORAVID (DEFIBROTIDE) [Concomitant]
  16. FORTUM/UNK/ (CEFTAZIDIME PENTAHYDRATE) [Concomitant]
  17. ZIENAM (IMIPENEM, CILASTATIN SODIUM) [Concomitant]
  18. TPN [Concomitant]

REACTIONS (4)
  - BONE PAIN [None]
  - DIALYSIS [None]
  - MICROANGIOPATHIC HAEMOLYTIC ANAEMIA [None]
  - RENAL FAILURE [None]
